FAERS Safety Report 19458098 (Version 1)
Quarter: 2021Q2

REPORT INFORMATION
  Report Type: Spontaneous
  Country: US (occurrence: US)
  Receive Date: 20210624
  Receipt Date: 20210624
  Transmission Date: 20210717
  Serious: No
  Sender: FDA-Public Use
  Company Number: US-SA-2021SA205989

PATIENT
  Sex: Male
  Weight: 83.9 kg

DRUGS (8)
  1. REVLIMID [Concomitant]
     Active Substance: LENALIDOMIDE
  2. ADVIL [Concomitant]
     Active Substance: IBUPROFEN
  3. ELIDEL [Concomitant]
     Active Substance: PIMECROLIMUS
     Indication: DERMATITIS ATOPIC
  4. ZYRTEC [Concomitant]
     Active Substance: CETIRIZINE HYDROCHLORIDE
  5. CALCIUM [Concomitant]
     Active Substance: CALCIUM
  6. VITAMIN D3 [Concomitant]
     Active Substance: CHOLECALCIFEROL
  7. TYLENOL [Concomitant]
     Active Substance: ACETAMINOPHEN
  8. DUPIXENT [Suspect]
     Active Substance: DUPILUMAB
     Indication: DERMATITIS ATOPIC
     Dosage: 300 MG, QOW
     Route: 058

REACTIONS (2)
  - Glomerular filtration rate decreased [Not Recovered/Not Resolved]
  - Blood creatinine increased [Not Recovered/Not Resolved]
